FAERS Safety Report 4717067-3 (Version None)
Quarter: 2005Q3

REPORT INFORMATION
  Report Type: 
  Country: None (occurrence: None)
  Receive Date: 20050715
  Receipt Date: 20050704
  Transmission Date: 20060218
  Serious: Yes (Other)
  Sender: FDA-Public Use
  Company Number: B0387202A

PATIENT
  Age: 70 Year
  Sex: Female

DRUGS (1)
  1. ZINACEF [Suspect]
     Indication: ILL-DEFINED DISORDER
     Dosage: INTRAVENOUS
     Route: 042

REACTIONS (2)
  - ARTERIOSPASM CORONARY [None]
  - HYPERSENSITIVITY [None]
